FAERS Safety Report 4509090-9 (Version None)
Quarter: 2004Q4

REPORT INFORMATION
  Report Type: 
  Country: None (occurrence: None)
  Receive Date: 20041025
  Receipt Date: 20040723
  Transmission Date: 20050328
  Serious: Yes (Other)
  Sender: FDA-Public Use
  Company Number: US-JNJFOC-20040706466

PATIENT
  Age: 42 Year
  Sex: Female
  Weight: 73.9363 kg

DRUGS (6)
  1. INFLIXIMAB (INFLIXIMAB, RECOMBINANT) LYOPHILIZED POWDER [Suspect]
     Indication: RHEUMATOID ARTHRITIS
     Dosage: INTRAVENOUS
     Route: 042
     Dates: start: 20030130, end: 20030819
  2. VICODIN (TABLETS) VICODIN [Concomitant]
  3. DSS (DOCUSATE SODIUM) [Concomitant]
  4. MULTIVITAMIN (MULTIVITAMIN) [Concomitant]
  5. CALCIUM (CALCIUM) [Concomitant]
  6. AMBIEN [Concomitant]

REACTIONS (1)
  - DYSPNOEA [None]
